FAERS Safety Report 16084782 (Version 1)
Quarter: 2019Q1

REPORT INFORMATION
  Report Type: Spontaneous
  Country: US (occurrence: US)
  Receive Date: 20190318
  Receipt Date: 20190318
  Transmission Date: 20190418
  Serious: No
  Sender: FDA-Public Use
  Company Number: US-AVADEL SPECIALTY PHARMACEUTICALS, LLC-2019AVA00066

PATIENT
  Sex: Male

DRUGS (7)
  1. NOCTIVA [Suspect]
     Active Substance: DESMOPRESSIN ACETATE
     Dosage: 0.83 ?G, 1X/DAY APPROXIMATELY 30 MINUTES BEFORE BEDTIME
     Route: 045
     Dates: start: 201812, end: 20190216
  2. TYLENOL [Concomitant]
     Active Substance: ACETAMINOPHEN
  3. CELEBREX [Concomitant]
     Active Substance: CELECOXIB
  4. NORVASC [Concomitant]
     Active Substance: AMLODIPINE BESYLATE
  5. LABETOLOL [Concomitant]
     Active Substance: LABETALOL HYDROCHLORIDE
  6. CLONIDINE. [Concomitant]
     Active Substance: CLONIDINE
  7. ATORVASTATIN [Concomitant]
     Active Substance: ATORVASTATIN

REACTIONS (3)
  - Nasal discomfort [Unknown]
  - Unevaluable event [Unknown]
  - Prostatomegaly [Unknown]
